FAERS Safety Report 18186871 (Version 1)
Quarter: 2020Q3

REPORT INFORMATION
  Report Type: Spontaneous
  Country: US (occurrence: US)
  Receive Date: 20200822
  Receipt Date: 20200822
  Transmission Date: 20201103
  Serious: No
  Sender: FDA-Public Use
  Company Number: None

PATIENT
  Age: 78 Year
  Sex: Male

DRUGS (15)
  1. SIMVASTATIN. [Concomitant]
     Active Substance: SIMVASTATIN
  2. METFORMIN HCL [Concomitant]
     Active Substance: METFORMIN HYDROCHLORIDE
  3. LISINOPRIL. [Concomitant]
     Active Substance: LISINOPRIL
  4. NOVOLOG [Concomitant]
     Active Substance: INSULIN ASPART
  5. CALCIUM [Concomitant]
     Active Substance: CALCIUM
  6. NAPROXEN. [Concomitant]
     Active Substance: NAPROXEN
  7. XALATAN [Concomitant]
     Active Substance: LATANOPROST
  8. FIRMAGON [Concomitant]
     Active Substance: DEGARELIX ACETATE
  9. ZOCOR [Concomitant]
     Active Substance: SIMVASTATIN
  10. GABAPENTIN. [Concomitant]
     Active Substance: GABAPENTIN
  11. ERLEADA [Suspect]
     Active Substance: APALUTAMIDE
     Indication: PROSTATE CANCER
     Route: 048
     Dates: start: 20180606
  12. COREG [Concomitant]
     Active Substance: CARVEDILOL
  13. LOSARTAN POTASSIUM. [Concomitant]
     Active Substance: LOSARTAN POTASSIUM
  14. ASPIRIN. [Concomitant]
     Active Substance: ASPIRIN
  15. PRAVASTATIN SODIUM. [Concomitant]
     Active Substance: PRAVASTATIN SODIUM

REACTIONS (1)
  - Hepatic mass [None]
